FAERS Safety Report 12628642 (Version 1)
Quarter: 2016Q3

REPORT INFORMATION
  Report Type: Spontaneous
  Country: US (occurrence: None)
  Receive Date: 20160805
  Receipt Date: 20160805
  Transmission Date: 20161109
  Serious: Yes (Hospitalization)
  Sender: FDA-Public Use
  Company Number: None

PATIENT
  Age: 40 Year
  Sex: Female
  Weight: 61.69 kg

DRUGS (5)
  1. PYIDOSTIGMINE [Concomitant]
  2. RANITIDINE. [Concomitant]
     Active Substance: RANITIDINE
  3. CAFFEINE. [Concomitant]
     Active Substance: CAFFEINE
  4. GABAPENTIN. [Concomitant]
     Active Substance: GABAPENTIN
  5. ESCITALOPRAM, 10 MG [Suspect]
     Active Substance: ESCITALOPRAM OXALATE
     Indication: DEPRESSION
     Route: 048
     Dates: start: 20150824, end: 20150913

REACTIONS (2)
  - Asthenia [None]
  - Arthropathy [None]

NARRATIVE: CASE EVENT DATE: 20150903
